FAERS Safety Report 16294209 (Version 2)
Quarter: 2020Q1

REPORT INFORMATION
  Report Type: Spontaneous
  Country: US (occurrence: US)
  Receive Date: 20190509
  Receipt Date: 20200325
  Transmission Date: 20200409
  Serious: Yes (Disabling)
  Sender: FDA-Public Use
  Company Number: US-ROCHE-2152323

PATIENT
  Sex: Male

DRUGS (1)
  1. ESBRIET [Suspect]
     Active Substance: PIRFENIDONE
     Indication: IDIOPATHIC PULMONARY FIBROSIS
     Route: 048
     Dates: start: 20180206

REACTIONS (4)
  - Dyspnoea [Not Recovered/Not Resolved]
  - Gastric cancer [Not Recovered/Not Resolved]
  - Abdominal discomfort [Unknown]
  - Rash [Recovered/Resolved]
